FAERS Safety Report 10664341 (Version 1)
Quarter: 2014Q4

REPORT INFORMATION
  Report Type: Spontaneous
  Country: US (occurrence: US)
  Receive Date: 20141219
  Receipt Date: 20141219
  Transmission Date: 20150529
  Serious: No
  Sender: FDA-Public Use
  Company Number: US-BIOGENIDEC-2014BI133174

PATIENT
  Age: 37 Year
  Sex: Female

DRUGS (10)
  1. DEPAKOTE [Concomitant]
     Active Substance: DIVALPROEX SODIUM
  2. MAXALT [Concomitant]
     Active Substance: RIZATRIPTAN BENZOATE
  3. BACLOFEN. [Concomitant]
     Active Substance: BACLOFEN
  4. CELEBREX [Concomitant]
     Active Substance: CELECOXIB
  5. OXYCODONE HCL [Concomitant]
     Active Substance: OXYCODONE HYDROCHLORIDE
  6. FIORICET [Concomitant]
     Active Substance: ACETAMINOPHEN\BUTALBITAL\CAFFEINE
  7. XANAX [Concomitant]
     Active Substance: ALPRAZOLAM
  8. VITAMIN D [Concomitant]
     Active Substance: CHOLECALCIFEROL
  9. TECFIDERA [Suspect]
     Active Substance: DIMETHYL FUMARATE
     Indication: MULTIPLE SCLEROSIS
     Route: 048
  10. TOPAMAX [Concomitant]
     Active Substance: TOPIRAMATE

REACTIONS (1)
  - Urinary tract infection [Recovered/Resolved]

NARRATIVE: CASE EVENT DATE: 201408
